FAERS Safety Report 7822673-3 (Version None)
Quarter: 2011Q4

REPORT INFORMATION
  Report Type: 
  Country: None (occurrence: None)
  Receive Date: 20111018
  Receipt Date: 20111005
  Transmission Date: 20120403
  Serious: Yes (Death)
  Sender: FDA-Public Use
  Company Number: GT-ROCHE-1002577

PATIENT
  Sex: Female

DRUGS (1)
  1. XELODA [Suspect]
     Indication: HEPATIC NEOPLASM MALIGNANT
     Route: 048
     Dates: start: 20110920, end: 20110928

REACTIONS (1)
  - DEATH [None]
